FAERS Safety Report 11588358 (Version 1)
Quarter: 2015Q4

REPORT INFORMATION
  Report Type: Report from Study
  Country: US (occurrence: US)
  Receive Date: 20151002
  Receipt Date: 20151002
  Transmission Date: 20160304
  Serious: Yes (Other)
  Sender: FDA-Public Use
  Company Number: US-AMGEN-USASP2015101471

PATIENT
  Sex: Female

DRUGS (2)
  1. ENBREL [Suspect]
     Active Substance: ETANERCEPT
     Indication: RHEUMATOID ARTHRITIS
     Dosage: 50 MG, 2 TIMES/WK
     Route: 065
     Dates: end: 201507
  2. ENBREL [Suspect]
     Active Substance: ETANERCEPT
     Dosage: 50 MG, 2 TIMES/WK
     Route: 065

REACTIONS (12)
  - Inappropriate schedule of drug administration [Unknown]
  - Pain [Unknown]
  - Foot deformity [Unknown]
  - Impaired work ability [Unknown]
  - Peripheral swelling [Unknown]
  - Back pain [Unknown]
  - Parkinson^s disease [Unknown]
  - Burning sensation [Unknown]
  - Insomnia [Unknown]
  - Fibromyalgia [Unknown]
  - Hand deformity [Unknown]
  - Erythema [Unknown]
